FAERS Safety Report 24342344 (Version 1)
Quarter: 2024Q3

REPORT INFORMATION
  Report Type: Spontaneous
  Country: GB (occurrence: GB)
  Receive Date: 20240920
  Receipt Date: 20240920
  Transmission Date: 20241017
  Serious: Yes (Death, Life-Threatening, Hospitalization, Other)
  Sender: ACCORD
  Company Number: None

PATIENT
  Age: 89 Year
  Sex: Female
  Weight: 43 kg

DRUGS (9)
  1. METHOTREXATE [Suspect]
     Active Substance: METHOTREXATE
     Indication: Adverse drug reaction
     Dosage: 10MG WEEKLY
     Dates: end: 20240815
  2. CARBIMAZOLE [Suspect]
     Active Substance: CARBIMAZOLE
     Indication: Product used for unknown indication
     Dosage: 10MG DAILY
     Dates: end: 20240815
  3. EDOXABAN [Concomitant]
     Active Substance: EDOXABAN
  4. PREDNISOLONE [Concomitant]
     Active Substance: PREDNISOLONE
     Indication: Adverse drug reaction
  5. FOLIC ACID [Concomitant]
     Active Substance: FOLIC ACID
     Indication: Adverse drug reaction
  6. BISOPROLOL [Concomitant]
     Active Substance: BISOPROLOL\BISOPROLOL FUMARATE
  7. CALCIUM CARBONATE\CHOLECALCIFEROL [Concomitant]
     Active Substance: CALCIUM CARBONATE\CHOLECALCIFEROL
  8. ATORVASTATIN [Concomitant]
     Active Substance: ATORVASTATIN
  9. ENALAPRIL [Concomitant]
     Active Substance: ENALAPRIL

REACTIONS (1)
  - Pancytopenia [Fatal]

NARRATIVE: CASE EVENT DATE: 20240814
